FAERS Safety Report 23229536 (Version 1)
Quarter: 2023Q4

REPORT INFORMATION
  Report Type: Report from Study
  Country: ES (occurrence: ES)
  Receive Date: 20231127
  Receipt Date: 20231127
  Transmission Date: 20240110
  Serious: Yes (Other)
  Sender: FDA-Public Use
  Company Number: ES-JNJFOC-20231165861

PATIENT
  Age: 72 Year
  Sex: Female

DRUGS (1)
  1. SPRAVATO [Suspect]
     Active Substance: ESKETAMINE
     Indication: Major depression
     Dosage: ALSO REPORTED AS 28 MG AND 84 MG
     Dates: start: 20221121

REACTIONS (14)
  - Hallucination [Recovered/Resolved]
  - Odynophagia [Recovered/Resolved]
  - Echocardiogram [Recovered/Resolved]
  - Paraesthesia [Recovered/Resolved]
  - Somnolence [Recovered/Resolved]
  - Tremor [Recovered/Resolved]
  - Dysgeusia [Recovered/Resolved]
  - Diplopia [Recovered/Resolved]
  - Dizziness [Recovered/Resolved]
  - Feeling abnormal [Recovered/Resolved]
  - Nasal pruritus [Recovered/Resolved]
  - Vision blurred [Recovered/Resolved]
  - Nausea [Recovered/Resolved]
  - Throat irritation [Recovered/Resolved]

NARRATIVE: CASE EVENT DATE: 20221121
